FAERS Safety Report 21122073 (Version 2)
Quarter: 2022Q3

REPORT INFORMATION
  Report Type: Spontaneous
  Country: US (occurrence: US)
  Receive Date: 20220722
  Receipt Date: 20220806
  Transmission Date: 20221026
  Serious: No
  Sender: FDA-Public Use
  Company Number: US-SA-SAC20220720001084

PATIENT
  Age: 66 Year
  Sex: Female

DRUGS (5)
  1. DUPIXENT [Suspect]
     Active Substance: DUPILUMAB
     Indication: Dermatitis atopic
     Dosage: 300 MG, QOW
     Route: 058
     Dates: start: 20201005
  2. ATORVASTATIN [Concomitant]
     Active Substance: ATORVASTATIN
  3. CLARITIN [Concomitant]
     Active Substance: LORATADINE
  4. DULOXETINE [Concomitant]
     Active Substance: DULOXETINE
  5. LEVOTHYROXINE [Concomitant]
     Active Substance: LEVOTHYROXINE

REACTIONS (2)
  - Rash [Unknown]
  - Drug ineffective [Unknown]
